FAERS Safety Report 15512159 (Version 1)
Quarter: 2018Q4

REPORT INFORMATION
  Report Type: Spontaneous
  Country: US (occurrence: US)
  Receive Date: 20181016
  Receipt Date: 20181016
  Transmission Date: 20190205
  Serious: No
  Sender: FDA-Public Use
  Company Number: US-VIFOR (INTERNATIONAL) INC.-VIT-2018-09674

PATIENT
  Sex: Male

DRUGS (1)
  1. VELPHORO [Suspect]
     Active Substance: FERRIC OXYHYDROXIDE
     Indication: END STAGE RENAL DISEASE
     Route: 048
     Dates: start: 20180901, end: 20180928

REACTIONS (2)
  - Faeces discoloured [Recovered/Resolved]
  - Oral mucosal discolouration [Recovered/Resolved]

NARRATIVE: CASE EVENT DATE: 20180901
